FAERS Safety Report 23657191 (Version 3)
Quarter: 2024Q2

REPORT INFORMATION
  Report Type: Spontaneous
  Country: US (occurrence: US)
  Receive Date: 20240321
  Receipt Date: 20240426
  Transmission Date: 20240716
  Serious: Yes (Other)
  Sender: FDA-Public Use
  Company Number: US-PFIZER INC-PV202400037143

PATIENT
  Age: 65 Year
  Sex: Female
  Weight: 134.24 kg

DRUGS (3)
  1. TIKOSYN [Suspect]
     Active Substance: DOFETILIDE
     Indication: Atrial fibrillation
     Dosage: 250 UG, 2X/DAY (AT EXACTLY 9 IN THE MORNING AND 9 AT NIGHT)
     Dates: start: 2011
  2. ELIQUIS [Concomitant]
     Active Substance: APIXABAN
     Dosage: 5 MG, 2X/DAY
  3. METOPROLOL [Concomitant]
     Active Substance: METOPROLOL
     Dosage: 12.5 MG, 2X/DAY

REACTIONS (5)
  - Breast cancer female [Unknown]
  - Neuroendocrine carcinoma [Unknown]
  - Abdominal hernia obstructive [Unknown]
  - Colectomy [Unknown]
  - Mastectomy [Unknown]

NARRATIVE: CASE EVENT DATE: 20181014
